FAERS Safety Report 8416130 (Version 2)
Quarter: 2013Q1

REPORT INFORMATION
  Report Type: Spontaneous
  Country: US (occurrence: US)
  Receive Date: 20120218
  Receipt Date: 20130119
  Transmission Date: 20140127
  Serious: No
  Sender: FDA-Public Use
  Company Number: US-ALLERGAN-1115645US

PATIENT
  Age: 41 Year
  Sex: Female

DRUGS (15)
  1. BOTOX COSMETIC [Suspect]
     Indication: SKIN WRINKLING
     Dosage: 34 UNITS, SINGLE
     Route: 030
     Dates: start: 20111118, end: 20111118
  2. BOTOX COSMETIC [Suspect]
     Dosage: 34 UNITS, SINGLE
     Route: 030
     Dates: start: 20111110, end: 20111110
  3. BOTOX COSMETIC [Suspect]
     Dosage: 34 UNITS, SINGLE
     Route: 030
     Dates: start: 20110311, end: 20110311
  4. BOTOX COSMETIC [Suspect]
     Dosage: 34 UNITS, SINGLE
     Route: 030
     Dates: start: 20110711, end: 20110711
  5. MILK THISTLE [Concomitant]
  6. CHROMIUM [Concomitant]
  7. DHEA [Concomitant]
  8. 5-HTP [Concomitant]
  9. PYCNOGENOL [Concomitant]
  10. CALCIUM [Concomitant]
  11. FISH OIL [Concomitant]
  12. VITAMIN B [Concomitant]
  13. ARMOUR THYROID [Concomitant]
  14. MINOCYCLINE [Concomitant]
     Indication: ACNE
  15. BIO-IDENTICAL HORMONES [Concomitant]

REACTIONS (5)
  - Anxiety [Not Recovered/Not Resolved]
  - Paranoia [Not Recovered/Not Resolved]
  - Affect lability [Not Recovered/Not Resolved]
  - Mental disorder [Not Recovered/Not Resolved]
  - Insomnia [Recovered/Resolved]
